FAERS Safety Report 6311911-4 (Version None)
Quarter: 2009Q3

REPORT INFORMATION
  Report Type: 
  Country: None (occurrence: None)
  Receive Date: 20090817
  Receipt Date: 20090813
  Transmission Date: 20100115
  Serious: Yes (Death, Other)
  Sender: FDA-Public Use
  Company Number: GB-BRISTOL-MYERS SQUIBB COMPANY-13163134

PATIENT
  Sex: Female

DRUGS (18)
  1. BLEOMYCIN SULFATE [Suspect]
     Indication: GERM CELL CANCER
     Dosage: ON DAY 3
     Route: 042
     Dates: start: 20050816
  2. ETOPOSIDE [Suspect]
     Indication: GERM CELL CANCER
     Dosage: ON DAYS 1,2 AND 3
     Route: 042
     Dates: start: 20050816
  3. CISPLATIN [Suspect]
     Indication: GERM CELL CANCER
     Dosage: ON DAY 1 AND 2
     Route: 042
     Dates: start: 20050816
  4. WARFARIN SODIUM [Concomitant]
     Indication: PROPHYLAXIS
  5. LEVOTHYROXINE SODIUM [Concomitant]
  6. HYDROCORTISONE [Concomitant]
  7. RANITIDINE [Concomitant]
  8. PREGABALIN [Concomitant]
  9. DOMPERIDONE [Concomitant]
  10. DESMOPRESSIN ACETATE [Concomitant]
  11. NULYTELY [Concomitant]
  12. APREPITANT [Concomitant]
     Indication: VOMITING
  13. LORAZEPAM [Concomitant]
     Indication: AGITATION
  14. METOCLOPRAMIDE [Concomitant]
  15. ORAMORPH SR [Concomitant]
     Indication: HEADACHE
  16. ACETAMINOPHEN W/ CODEINE [Concomitant]
     Indication: HEADACHE
  17. GRANISETRON HCL [Concomitant]
     Indication: VOMITING
  18. LYRICA [Concomitant]

REACTIONS (6)
  - BODY TEMPERATURE INCREASED [None]
  - HEADACHE [None]
  - MALIGNANT NEOPLASM PROGRESSION [None]
  - NEUTROPENIC SEPSIS [None]
  - PNEUMONIA [None]
  - SOMNOLENCE [None]
